FAERS Safety Report 13407861 (Version 1)
Quarter: 2017Q2

REPORT INFORMATION
  Report Type: Report from Study
  Country: None (occurrence: US)
  Receive Date: 20170406
  Receipt Date: 20170406
  Transmission Date: 20170830
  Serious: Yes (Other)
  Sender: FDA-Public Use
  Company Number: US-ABBVIE-17K-163-1874066-00

PATIENT
  Age: 45 Year
  Sex: Female
  Weight: 88.53 kg

DRUGS (3)
  1. HUMIRA [Suspect]
     Active Substance: ADALIMUMAB
     Indication: PSORIATIC ARTHROPATHY
     Route: 058
     Dates: start: 20170214, end: 20170214
  2. ATIVAN [Concomitant]
     Active Substance: LORAZEPAM
     Indication: HEART RATE INCREASED
     Dates: start: 2014
  3. HUMIRA [Suspect]
     Active Substance: ADALIMUMAB
     Indication: PSORIASIS
     Route: 058
     Dates: start: 2016, end: 20170115

REACTIONS (4)
  - Myocardial infarction [Recovering/Resolving]
  - Hyperhidrosis [Unknown]
  - Coronary artery occlusion [Unknown]
  - Vomiting [Unknown]

NARRATIVE: CASE EVENT DATE: 20170129
